FAERS Safety Report 9722914 (Version 1)
Quarter: 2013Q4

REPORT INFORMATION
  Report Type: Spontaneous
  Country: US (occurrence: None)
  Receive Date: 20131127
  Receipt Date: 20131127
  Transmission Date: 20140711
  Serious: No
  Sender: FDA-Public Use
  Company Number: None

PATIENT
  Age: 24 Year
  Sex: Female
  Weight: 88.45 kg

DRUGS (2)
  1. AMETHIA [Suspect]
     Indication: CONTRACEPTION
     Dosage: 1 PILL QHS/BEDTIME ORAL
     Route: 048
     Dates: start: 20130825, end: 20131123
  2. AMETHIA [Suspect]
     Indication: MENSTRUAL CYCLE MANAGEMENT
     Dosage: 1 PILL QHS/BEDTIME ORAL
     Route: 048
     Dates: start: 20130825, end: 20131123

REACTIONS (3)
  - Product substitution issue [None]
  - Metrorrhagia [None]
  - Product quality issue [None]
